FAERS Safety Report 13421861 (Version 3)
Quarter: 2017Q2

REPORT INFORMATION
  Report Type: Spontaneous
  Country: US (occurrence: US)
  Receive Date: 20170410
  Receipt Date: 20170428
  Transmission Date: 20170830
  Serious: No
  Sender: FDA-Public Use
  Company Number: US-PFIZER INC-2017150294

PATIENT
  Age: 50 Year
  Sex: Female
  Weight: 94.33 kg

DRUGS (8)
  1. VITAMIN D [Concomitant]
     Active Substance: CHOLECALCIFEROL
     Dosage: 50000 IU, WEEKLY
     Route: 048
  2. LOSARTAN POTASSIUM/HCTZ [Concomitant]
     Active Substance: HYDROCHLOROTHIAZIDE\LOSARTAN POTASSIUM
     Dosage: 1 DF, 1X/DAY [LOSARTAN POTASSIUM: 100 MCG] / [HCTZ: 12.5 MCG]
     Route: 048
  3. DESONIDE. [Concomitant]
     Active Substance: DESONIDE
     Indication: PRURITUS
     Dosage: UNK, 2X/DAY
     Route: 061
  4. PENLAC [Concomitant]
     Active Substance: CICLOPIROX
     Dosage: UNK
     Route: 061
  5. LO LOESTRIN FE [Concomitant]
     Active Substance: ETHINYL ESTRADIOL\NORETHINDRONE ACETATE
     Dosage: 1 DF, DAILY[ETHINYLESTRADIOL:10 MCG] / [FERROUS FUMARATE: 10 MCG] / [NORETHISTERONE ACETATE:1 MG]
     Route: 048
  6. METFORMIN HCL [Concomitant]
     Active Substance: METFORMIN HYDROCHLORIDE
     Dosage: 500 MG, 3X/DAY
     Route: 048
  7. XELJANZ XR [Suspect]
     Active Substance: TOFACITINIB CITRATE
     Indication: RHEUMATOID ARTHRITIS
     Dosage: 11 MG, DAILY
     Route: 048
     Dates: start: 201612
  8. DICLOFENAC SODIUM. [Concomitant]
     Active Substance: DICLOFENAC SODIUM
     Dosage: 75 MG, AS NEEDED[2 TIMES EVERY DAY]
     Route: 048

REACTIONS (10)
  - C-reactive protein increased [Unknown]
  - Plantar fasciitis [Unknown]
  - Joint swelling [Recovering/Resolving]
  - Joint range of motion decreased [Recovering/Resolving]
  - Peripheral swelling [Unknown]
  - Pain in extremity [Unknown]
  - Arthralgia [Recovering/Resolving]
  - Drug effect incomplete [Unknown]
  - Red blood cell count increased [Unknown]
  - Exostosis [Unknown]

NARRATIVE: CASE EVENT DATE: 20170124
